FAERS Safety Report 4313125-6 (Version None)
Quarter: 2004Q1

REPORT INFORMATION
  Report Type: 
  Country: None (occurrence: None)
  Receive Date: 20040304
  Receipt Date: 20040212
  Transmission Date: 20041129
  Serious: Yes (Death, Hospitalization)
  Sender: FDA-Public Use
  Company Number: JP_040102501

PATIENT
  Age: 4 Year
  Sex: Female
  Weight: 15 kg

DRUGS (7)
  1. ONCOVIN [Suspect]
     Indication: NEUROBLASTOMA
     Dosage: 0.45 MG/DAY
     Dates: start: 19990408, end: 19990410
  2. CYCLOPHOSPHAMIDE [Concomitant]
  3. ADRIAMYCIN PFS [Concomitant]
  4. UROMITEXAN (MESNA) [Concomitant]
  5. KYTRIL - FOR INFUSION (GRANISETRON HYDROCHLORIDE) [Concomitant]
  6. FUNGIZONE [Concomitant]
  7. BAKTAR [Concomitant]

REACTIONS (4)
  - BONE MARROW DEPRESSION [None]
  - INFECTION [None]
  - METASTASES TO BONE [None]
  - NEUROBLASTOMA [None]
